FAERS Safety Report 16791933 (Version 1)
Quarter: 2019Q3

REPORT INFORMATION
  Report Type: Report from Study
  Country: CN (occurrence: CN)
  Receive Date: 20190910
  Receipt Date: 20190910
  Transmission Date: 20191005
  Serious: Yes (Life-Threatening, Hospitalization)
  Sender: FDA-Public Use
  Company Number: CN-PFIZER INC-2019381479

PATIENT
  Age: 66 Year
  Sex: Male

DRUGS (13)
  1. PROMETHAZINE [Concomitant]
     Active Substance: PROMETHAZINE HYDROCHLORIDE
     Indication: PROPHYLAXIS
     Dosage: 12.5 MG, 1X/DAY
     Route: 042
     Dates: start: 20190731, end: 20190731
  2. PALONOSETRON. [Concomitant]
     Active Substance: PALONOSETRON HYDROCHLORIDE
     Indication: PROPHYLAXIS OF NAUSEA AND VOMITING
     Dosage: 0.25 MG, 1X/DAY
     Route: 042
     Dates: start: 20190731, end: 20190731
  3. BLINDED THERAPY [Suspect]
     Active Substance: INVESTIGATIONAL PRODUCT
     Indication: NON-SMALL CELL LUNG CANCER
     Dosage: 200 MG, ONCE ONLY
     Route: 041
     Dates: start: 20190731, end: 20190731
  4. ESOMEPRAZOLE MAGNESIUM. [Concomitant]
     Active Substance: ESOMEPRAZOLE MAGNESIUM
     Indication: PROPHYLAXIS
     Dosage: 1 DF, 1X/DAY
     Route: 048
     Dates: start: 20190730, end: 20190805
  5. ANZATAX (PACLITAXEL) [Suspect]
     Active Substance: PACLITAXEL
     Indication: NON-SMALL CELL LUNG CANCER
     Dosage: 308 MG, ONCE ONLY (ONCE EVERY 2 WEEKS)
     Route: 041
     Dates: start: 20190731, end: 20190731
  6. CARBOPLATIN. [Suspect]
     Active Substance: CARBOPLATIN
     Indication: NON-SMALL CELL LUNG CANCER
     Dosage: 590 MG, ONCE ONLY
     Route: 041
     Dates: start: 20190731, end: 20190731
  7. VALSARTAN. [Concomitant]
     Active Substance: VALSARTAN
     Indication: HYPERTENSION
     Dosage: 1 DF, 1X/DAY
     Route: 048
     Dates: start: 2016
  8. TROPISETRON [Concomitant]
     Active Substance: TROPISETRON
     Indication: PROPHYLAXIS
     Dosage: 5 MG, 1X/DAY
     Route: 042
     Dates: start: 20190731, end: 20190731
  9. MEXILETINE [Concomitant]
     Active Substance: MEXILETINE
     Indication: VENTRICULAR EXTRASYSTOLES
     Dosage: 3 DF EACH TIME, UNK
     Route: 048
     Dates: start: 20190708
  10. TRIMETAZIDINE HYDROCHLORIDE [Concomitant]
     Active Substance: TRIMETAZIDINE DIHYDROCHLORIDE
     Indication: VENTRICULAR EXTRASYSTOLES
     Dosage: 1 DF, 2X/DAY
     Route: 048
     Dates: start: 20190708
  11. LANSOPRAZOLE. [Concomitant]
     Active Substance: LANSOPRAZOLE
     Indication: PROPHYLAXIS
     Dosage: 30 MG, 1X/DAY
     Route: 042
     Dates: start: 20190731, end: 20190731
  12. DEXAMETHASONE. [Concomitant]
     Active Substance: DEXAMETHASONE
     Indication: ALLERGY PROPHYLAXIS
     Dosage: 7.5 MG, 2X/DAY
     Route: 048
     Dates: start: 20190730, end: 20190801
  13. AMLODIPINE BESYLATE. [Concomitant]
     Active Substance: AMLODIPINE BESYLATE
     Indication: HYPERTENSION
     Dosage: 1 DF, 1X/DAY
     Route: 048
     Dates: start: 2016

REACTIONS (5)
  - Electrolyte imbalance [Recovering/Resolving]
  - Respiratory failure [Recovered/Resolved]
  - Lung infection [Recovering/Resolving]
  - Hypoproteinaemia [Recovering/Resolving]
  - Bone marrow failure [Recovered/Resolved]

NARRATIVE: CASE EVENT DATE: 20190806
